FAERS Safety Report 4856003-6 (Version None)
Quarter: 2005Q4

REPORT INFORMATION
  Report Type: 
  Country: None (occurrence: None)
  Receive Date: 20051214
  Receipt Date: 20051130
  Transmission Date: 20060501
  Serious: Yes (Death)
  Sender: FDA-Public Use
  Company Number: 2005002300

PATIENT
  Age: 5 Year
  Sex: Female

DRUGS (1)
  1. ERLOTINIB (TABLET) (ERLOTINIB HCL) [Suspect]
     Indication: BRAIN STEM GLIOMA
     Dosage: 50 MG (QD), ORAL
     Route: 048
     Dates: start: 20051013

REACTIONS (11)
  - ASPIRATION [None]
  - CONVULSION [None]
  - DEVICE RELATED INFECTION [None]
  - HYDROCEPHALUS [None]
  - HYPERTHERMIA [None]
  - INTRACRANIAL PRESSURE INCREASED [None]
  - NEUROTOXICITY [None]
  - REFUSAL OF TREATMENT BY RELATIVE [None]
  - RESPIRATORY ARREST [None]
  - THERAPY NON-RESPONDER [None]
  - TUMOUR HAEMORRHAGE [None]
